FAERS Safety Report 6758932-5 (Version None)
Quarter: 2010Q2

REPORT INFORMATION
  Report Type: 
  Country: None (occurrence: None)
  Receive Date: 20100607
  Receipt Date: 20100505
  Transmission Date: 20101027
  Serious: No
  Sender: FDA-Public Use
  Company Number: US-BAYER-201015256BCC

PATIENT
  Age: 53 Year
  Sex: Female
  Weight: 93 kg

DRUGS (5)
  1. ALEVE (CAPLET) [Suspect]
     Indication: ARTHRALGIA
     Dosage: UNIT DOSE: 220 MG
     Route: 048
     Dates: start: 20100502
  2. MULTI-VITAMIN [Concomitant]
     Route: 065
  3. VITAMIN B COMPLEX TAB [Concomitant]
     Route: 065
  4. MAXITRATE [Concomitant]
     Route: 065
  5. LEUCOVORIN CALCIUM [Concomitant]
     Route: 065

REACTIONS (2)
  - ABDOMINAL PAIN UPPER [None]
  - MOTION SICKNESS [None]
